FAERS Safety Report 8545451-9 (Version None)
Quarter: 2012Q3

REPORT INFORMATION
  Report Type: 
  Country: None (occurrence: None)
  Receive Date: 20120727
  Receipt Date: 20111108
  Transmission Date: 20120928
  Serious: No
  Sender: FDA-Public Use
  Company Number: US-ASTRAZENECA-2011SE67417

PATIENT
  Age: 20 Year
  Sex: Female

DRUGS (2)
  1. ZOLOFT [Concomitant]
  2. SEROQUEL XR [Suspect]
     Indication: MAJOR DEPRESSION
     Route: 048

REACTIONS (1)
  - FEELING JITTERY [None]
